FAERS Safety Report 20467355 (Version 1)
Quarter: 2022Q1

REPORT INFORMATION
  Report Type: Spontaneous
  Country: US (occurrence: US)
  Receive Date: 20220214
  Receipt Date: 20220214
  Transmission Date: 20220424
  Serious: No
  Sender: FDA-Public Use
  Company Number: US-APOTEX-2022AP003404

PATIENT
  Age: 29 Year
  Sex: Female

DRUGS (2)
  1. PAROXETINE [Suspect]
     Active Substance: PAROXETINE
     Indication: Persistent depressive disorder
     Dosage: 20 MILLIGRAM, QD
     Route: 065
  2. PAROXETINE [Suspect]
     Active Substance: PAROXETINE
     Indication: Borderline personality disorder

REACTIONS (2)
  - Electric shock sensation [Unknown]
  - Paraesthesia [Unknown]
